FAERS Safety Report 7644407-8 (Version None)
Quarter: 2011Q3

REPORT INFORMATION
  Report Type: 
  Country: None (occurrence: None)
  Receive Date: 20110722
  Receipt Date: 20110706
  Transmission Date: 20111222
  Serious: Yes (Death)
  Sender: FDA-Public Use
  Company Number: DSA_47100_2011

PATIENT
  Sex: Male

DRUGS (1)
  1. XENAZINE [Suspect]
     Indication: PRODUCT USED FOR UNKNOWN INDICATION
     Dosage: DF
     Dates: start: 20100507, end: 20110621

REACTIONS (1)
  - DEATH [None]
